FAERS Safety Report 20961439 (Version 2)
Quarter: 2022Q3

REPORT INFORMATION
  Report Type: Spontaneous
  Country: US (occurrence: None)
  Receive Date: 20220615
  Receipt Date: 20220805
  Transmission Date: 20221026
  Serious: No
  Sender: FDA-Public Use
  Company Number: 2022A215750

PATIENT
  Sex: Male

DRUGS (1)
  1. BYDUREON BCISE [Suspect]
     Active Substance: EXENATIDE
     Indication: Glycosylated haemoglobin increased
     Route: 058

REACTIONS (3)
  - Diarrhoea [Recovered/Resolved]
  - Device delivery system issue [Unknown]
  - Device leakage [Unknown]
